FAERS Safety Report 22588981 (Version 1)
Quarter: 2023Q2

REPORT INFORMATION
  Report Type: Spontaneous
  Country: US (occurrence: None)
  Receive Date: 20230609
  Receipt Date: 20230609
  Transmission Date: 20230722
  Serious: Yes (Death)
  Sender: FDA-Public Use
  Company Number: None

PATIENT
  Sex: Male

DRUGS (11)
  1. ABIRATERONE [Suspect]
     Active Substance: ABIRATERONE
     Indication: Prostate cancer
     Dosage: FREQUENCY : DAILY;?
     Route: 048
  2. CENTRUM [Concomitant]
  3. COENZYME [Concomitant]
  4. DEGARELIX [Concomitant]
  5. DOCUSATE [Concomitant]
  6. GLIMEPRIDE [Concomitant]
  7. LEUPROLIDE [Concomitant]
  8. LOSARTAN [Concomitant]
     Active Substance: LOSARTAN
  9. PREDNISONE [Concomitant]
  10. ROSUVASTATIN [Concomitant]
  11. SOLIFENACIN [Concomitant]

REACTIONS (1)
  - Death [None]
